FAERS Safety Report 4934235-6 (Version None)
Quarter: 2006Q1

REPORT INFORMATION
  Report Type: 
  Country: None (occurrence: None)
  Receive Date: 20060307
  Receipt Date: 20060301
  Transmission Date: 20060701
  Serious: Yes (Other)
  Sender: FDA-Public Use
  Company Number: GB-AVENTIS-200612002GDDC

PATIENT
  Age: 43 Year
  Sex: Female

DRUGS (5)
  1. LANTUS [Suspect]
     Dosage: DOSE UNIT: UNITS
     Route: 058
     Dates: start: 20060215
  2. REPAGLINIDE [Suspect]
     Route: 048
     Dates: start: 20060215
  3. METFORMIN [Concomitant]
     Route: 048
  4. ROSIGLITAZONE [Concomitant]
  5. GLICLAZIDE [Concomitant]

REACTIONS (4)
  - PAIN IN EXTREMITY [None]
  - PHARYNGOLARYNGEAL PAIN [None]
  - SKIN DISORDER [None]
  - SWOLLEN TONGUE [None]
